FAERS Safety Report 23110213 (Version 3)
Quarter: 2023Q4

REPORT INFORMATION
  Report Type: Report from Study
  Country: CA (occurrence: CA)
  Receive Date: 20231026
  Receipt Date: 20231208
  Transmission Date: 20240110
  Serious: Yes (Other)
  Sender: FDA-Public Use
  Company Number: CA-OTSUKA-2023_008159

PATIENT
  Sex: Male

DRUGS (1)
  1. ARIPIPRAZOLE [Suspect]
     Active Substance: ARIPIPRAZOLE
     Indication: Product used for unknown indication
     Dosage: 400 MG EVERY 21 DAYS (EVERY 3 WEEKS)
     Route: 030

REACTIONS (11)
  - Intentional self-injury [Unknown]
  - Hallucination, auditory [Not Recovered/Not Resolved]
  - Stress [Unknown]
  - Paranoia [Not Recovered/Not Resolved]
  - Mood altered [Unknown]
  - Delusion [Not Recovered/Not Resolved]
  - Insomnia [Not Recovered/Not Resolved]
  - Anxiety [Unknown]
  - Gambling disorder [Unknown]
  - Alcohol use [Unknown]
  - Inappropriate schedule of product administration [Unknown]
